FAERS Safety Report 18145039 (Version 1)
Quarter: 2020Q3

REPORT INFORMATION
  Report Type: Spontaneous
  Country: BR (occurrence: BR)
  Receive Date: 20200813
  Receipt Date: 20200813
  Transmission Date: 20201103
  Serious: Yes (Other)
  Sender: FDA-Public Use
  Company Number: BR-PFIZER INC-2020312512

PATIENT
  Sex: Female

DRUGS (1)
  1. FRONTAL [Suspect]
     Active Substance: ALPRAZOLAM
     Dosage: 0.5 MG

REACTIONS (4)
  - Poor quality product administered [Unknown]
  - Prescription drug used without a prescription [Unknown]
  - Dementia Alzheimer^s type [Unknown]
  - Product physical issue [Unknown]
